FAERS Safety Report 8546928-2 (Version None)
Quarter: 2012Q3

REPORT INFORMATION
  Report Type: 
  Country: None (occurrence: None)
  Receive Date: 20120727
  Receipt Date: 20120118
  Transmission Date: 20120928
  Serious: No
  Sender: FDA-Public Use
  Company Number: US-ASTRAZENECA-2012SE03997

PATIENT
  Age: 58 Year
  Sex: Male
  Weight: 117.9 kg

DRUGS (8)
  1. DIAVAN [Concomitant]
  2. LEVOTHYROXINE SODIUM [Concomitant]
     Indication: HYPOTHYROIDISM
  3. SIMVASTATIN [Concomitant]
  4. SEROQUEL [Suspect]
     Route: 048
  5. PROZAC [Concomitant]
     Route: 065
  6. ALPRAZOLAC [Concomitant]
  7. SEROQUEL [Suspect]
     Indication: BIPOLAR DISORDER
     Route: 048
     Dates: start: 20100101
  8. PROZAC [Concomitant]
     Route: 065

REACTIONS (2)
  - WRONG TECHNIQUE IN DRUG USAGE PROCESS [None]
  - MANIA [None]
